FAERS Safety Report 10443731 (Version 10)
Quarter: 2016Q2

REPORT INFORMATION
  Report Type: Report from Study
  Country: CA (occurrence: CA)
  Receive Date: 20140910
  Receipt Date: 20160507
  Transmission Date: 20160815
  Serious: Yes (Hospitalization, Other)
  Sender: FDA-Public Use
  Company Number: PHHY2014CA033456

PATIENT
  Age: 67 Year
  Sex: Male

DRUGS (2)
  1. SANDOSTATIN [Suspect]
     Active Substance: OCTREOTIDE ACETATE
     Indication: PANCREATIC NEUROENDOCRINE TUMOUR METASTATIC
     Dosage: UNK UG, ONCE/SINGLE (TEST)
     Route: 058
     Dates: start: 20140303, end: 20140303
  2. SANDOSTATIN LAR DEPOT [Suspect]
     Active Substance: OCTREOTIDE ACETATE
     Indication: PANCREATIC NEUROENDOCRINE TUMOUR METASTATIC
     Dosage: 30 MG, QMO/EVERY 4 WEEKS
     Route: 030
     Dates: start: 20140315

REACTIONS (11)
  - Blood pressure increased [Unknown]
  - Abdominal pain lower [Unknown]
  - Malaise [Unknown]
  - Body temperature decreased [Unknown]
  - Weight decreased [Unknown]
  - Back pain [Unknown]
  - Abdominal pain [Unknown]
  - Device related infection [Unknown]
  - Myocardial infarction [Unknown]
  - Septic shock [Recovering/Resolving]
  - Heart rate decreased [Unknown]

NARRATIVE: CASE EVENT DATE: 20140513
